FAERS Safety Report 5463129-5 (Version None)
Quarter: 2007Q3

REPORT INFORMATION
  Report Type: 
  Country: None (occurrence: None)
  Receive Date: 20070918
  Receipt Date: 20070918
  Transmission Date: 20080115
  Serious: Yes (Death)
  Sender: FDA-Public Use
  Company Number: None

PATIENT
  Age: 43 Year
  Sex: Male
  Weight: 105 kg

DRUGS (1)
  1. DICLOFENAC SODIUM [Suspect]
     Indication: ARTHRITIS
     Dosage: 1 TWICE DAILY PO
     Route: 048
     Dates: start: 20070316, end: 20070401

REACTIONS (2)
  - HYPERTENSION [None]
  - MALAISE [None]
